FAERS Safety Report 18100822 (Version 1)
Quarter: 2020Q3

REPORT INFORMATION
  Report Type: Spontaneous
  Country: US (occurrence: US)
  Receive Date: 20200731
  Receipt Date: 20200731
  Transmission Date: 20201103
  Serious: Yes (Death, Other)
  Sender: FDA-Public Use
  Company Number: US-PURDUE-USA-2020-0160240

PATIENT
  Sex: Female

DRUGS (1)
  1. OXYCONTIN [Suspect]
     Active Substance: OXYCODONE HYDROCHLORIDE
     Indication: PRODUCT USED FOR UNKNOWN INDICATION
     Dosage: UNKNOWN
     Route: 048

REACTIONS (7)
  - Emotional distress [Unknown]
  - Pain [Unknown]
  - Overdose [Unknown]
  - Death [Fatal]
  - Drug rehabilitation [Unknown]
  - Panic attack [Unknown]
  - Drug dependence [Unknown]

NARRATIVE: CASE EVENT DATE: 20021206
